FAERS Safety Report 8590947-7 (Version None)
Quarter: 2012Q3

REPORT INFORMATION
  Report Type: 
  Country: None (occurrence: None)
  Receive Date: 20120813
  Receipt Date: 20120809
  Transmission Date: 20120928
  Serious: Yes (Other)
  Sender: FDA-Public Use
  Company Number: IL-AMGEN-ISRSP2012041475

PATIENT
  Age: 78 Year
  Sex: Male
  Weight: 78 kg

DRUGS (7)
  1. FUSID                              /00032601/ [Concomitant]
     Dosage: UNK
  2. LOSEC                              /00661201/ [Concomitant]
     Dosage: UNK
  3. NPLATE [Suspect]
     Indication: IDIOPATHIC THROMBOCYTOPENIC PURPURA
     Dosage: 500 MUG, QWK
     Dates: start: 20101102
  4. NPLATE [Suspect]
     Dosage: 250 MUG, ONE TIME DOSE
  5. SLOW-K [Concomitant]
     Dosage: UNK
  6. PREDNISONE TAB [Concomitant]
     Dosage: UNK
  7. IKACOR [Concomitant]
     Dosage: UNK

REACTIONS (1)
  - ACCIDENTAL OVERDOSE [None]
